FAERS Safety Report 22175103 (Version 6)
Quarter: 2025Q1

REPORT INFORMATION
  Report Type: Spontaneous
  Country: DE (occurrence: DE)
  Receive Date: 20230405
  Receipt Date: 20250206
  Transmission Date: 20250408
  Serious: Yes (Other)
  Sender: AUROBINDO
  Company Number: DE-MODERNATX, INC.-MOD-2023-694649

PATIENT
  Age: 48 Year
  Sex: Male
  Weight: 130 kg

DRUGS (3)
  1. PREGABALIN [Suspect]
     Active Substance: PREGABALIN
     Indication: Product used for unknown indication
     Dosage: 150 MILLIGRAM, ONCE A DAY, 75MG
     Route: 065
  2. PREGABALIN [Suspect]
     Active Substance: PREGABALIN
     Dosage: UNK UNK, ONCE A DAY
     Route: 065
  3. SPIKEVAX [Suspect]
     Active Substance: CX-046684
     Indication: COVID-19 prophylaxis
     Route: 065
     Dates: start: 20220108

REACTIONS (23)
  - Paralysis [Not Recovered/Not Resolved]
  - Hepatic cirrhosis [Unknown]
  - Axonal and demyelinating polyneuropathy [Not Recovered/Not Resolved]
  - Nerve root injury lumbar [Unknown]
  - Balance disorder [Unknown]
  - COVID-19 immunisation [Unknown]
  - Dizziness [Unknown]
  - Dyspnoea [Unknown]
  - Fatigue [Unknown]
  - Hypoaesthesia [Unknown]
  - Obstructive sleep apnoea syndrome [Not Recovered/Not Resolved]
  - Condition aggravated [Not Recovered/Not Resolved]
  - Sleep disorder [Unknown]
  - Visual impairment [Not Recovered/Not Resolved]
  - Interchange of vaccine products [Unknown]
  - Asthma [Unknown]
  - Emphysema [Unknown]
  - Chronic obstructive pulmonary disease [Not Recovered/Not Resolved]
  - Carpal tunnel syndrome [Unknown]
  - Radiculopathy [Unknown]
  - Spinal flattening [Unknown]
  - Viral acanthoma [Unknown]
  - Skin papilloma [Unknown]

NARRATIVE: CASE EVENT DATE: 20220101
